FAERS Safety Report 6816401-8 (Version None)
Quarter: 2010Q3

REPORT INFORMATION
  Report Type: 
  Country: None (occurrence: None)
  Receive Date: 20100705
  Receipt Date: 20100630
  Transmission Date: 20110219
  Serious: Yes (Death, Other)
  Sender: FDA-Public Use
  Company Number: PHHY2010MX25104

PATIENT
  Sex: Female

DRUGS (2)
  1. FEMARA [Suspect]
     Indication: BREAST CANCER
     Dosage: 1 TABLET PER DAY (2.5 MG)
     Dates: start: 20050801
  2. FEMARA [Suspect]
     Dosage: 2.5 MG, 01 TABLET, PER DAY
     Dates: start: 20060726

REACTIONS (3)
  - MALIGNANT NEOPLASM PROGRESSION [None]
  - PLEURAL EFFUSION [None]
  - RESPIRATORY ARREST [None]
